FAERS Safety Report 8496905-5 (Version None)
Quarter: 2012Q3

REPORT INFORMATION
  Report Type: 
  Country: None (occurrence: None)
  Receive Date: 20120709
  Receipt Date: 20120627
  Transmission Date: 20120928
  Serious: Yes (Other)
  Sender: FDA-Public Use
  Company Number: JP-ELI_LILLY_AND_COMPANY-JP201205009383

PATIENT
  Sex: Female

DRUGS (2)
  1. FORTEO [Suspect]
     Route: 058
  2. FORTEO [Suspect]
     Route: 058

REACTIONS (7)
  - COMPRESSION FRACTURE [None]
  - INCORRECT STORAGE OF DRUG [None]
  - RIB FRACTURE [None]
  - CONTUSION [None]
  - DRUG INEFFECTIVE [None]
  - ABDOMINAL PAIN UPPER [None]
  - PRURITUS GENERALISED [None]
